FAERS Safety Report 21247874 (Version 1)
Quarter: 2022Q3

REPORT INFORMATION
  Report Type: Spontaneous
  Country: US (occurrence: US)
  Receive Date: 20220824
  Receipt Date: 20220824
  Transmission Date: 20221027
  Serious: No
  Sender: FDA-Public Use
  Company Number: US-GLAXOSMITHKLINE-USCH2022029850

PATIENT
  Sex: Male

DRUGS (1)
  1. NICORETTE [Suspect]
     Active Substance: NICOTINE
     Indication: Nicotine dependence
     Dosage: UNK
     Dates: start: 20220730, end: 20220808

REACTIONS (1)
  - Throat irritation [Recovered/Resolved]

NARRATIVE: CASE EVENT DATE: 20220730
